FAERS Safety Report 5722191-2 (Version None)
Quarter: 2008Q2

REPORT INFORMATION
  Report Type: 
  Country: None (occurrence: None)
  Receive Date: 20080429
  Receipt Date: 20080418
  Transmission Date: 20081010
  Serious: Yes (Other)
  Sender: FDA-Public Use
  Company Number: DE-ELI_LILLY_AND_COMPANY-DE200803006708

PATIENT
  Sex: Male
  Weight: 73 kg

DRUGS (3)
  1. CYMBALTA [Suspect]
     Indication: DEPRESSION
  2. CYMBALTA [Suspect]
     Dosage: 60 MG, DAILY (1/D)
     Route: 048
     Dates: start: 20070101, end: 20070101
  3. CYMBALTA [Suspect]
     Dosage: 30 MG, DAILY (1/D)
     Route: 048
     Dates: start: 20070101, end: 20071101

REACTIONS (3)
  - ARRHYTHMIA [None]
  - BUNDLE BRANCH BLOCK LEFT [None]
  - ELECTROCARDIOGRAM QRS COMPLEX PROLONGED [None]
